FAERS Safety Report 14751650 (Version 2)
Quarter: 2018Q2

REPORT INFORMATION
  Report Type: Spontaneous
  Country: US (occurrence: US)
  Receive Date: 20180412
  Receipt Date: 20180416
  Transmission Date: 20180711
  Serious: Yes (Other)
  Sender: FDA-Public Use
  Company Number: US-PFIZER INC-2018145613

PATIENT
  Age: 8 Year
  Sex: Female

DRUGS (2)
  1. FOLIC ACID. [Concomitant]
     Active Substance: FOLIC ACID
     Indication: PSORIASIS
     Dosage: 6 DAYS PER WEEK
  2. METHOTREXATE SODIUM. [Suspect]
     Active Substance: METHOTREXATE SODIUM
     Indication: PSORIASIS
     Dosage: 12.5 MG, WEEKLY (0.23 MG/KG)
     Route: 058

REACTIONS (5)
  - Mood altered [Recovered/Resolved]
  - Neurotoxicity [Recovered/Resolved]
  - Irritability [Recovered/Resolved]
  - Physical assault [Recovered/Resolved]
  - Depressed mood [Recovered/Resolved]
